FAERS Safety Report 9131578 (Version 1)
Quarter: 2013Q1

REPORT INFORMATION
  Report Type: Spontaneous
  Country: FR (occurrence: FR)
  Receive Date: 20130301
  Receipt Date: 20130301
  Transmission Date: 20140127
  Serious: Yes (Hospitalization, Other)
  Sender: FDA-Public Use
  Company Number: FR-JNJFOC-20130214621

PATIENT
  Sex: Male

DRUGS (3)
  1. XARELTO [Suspect]
     Indication: PRODUCT USED FOR UNKNOWN INDICATION
     Route: 048
     Dates: start: 20121215, end: 20121225
  2. CARDENSIEL [Concomitant]
     Route: 065
     Dates: start: 201212
  3. CORDARONE [Concomitant]
     Route: 065
     Dates: start: 201212

REACTIONS (2)
  - Gastritis haemorrhagic [Recovered/Resolved]
  - Melaena [Recovered/Resolved]
